FAERS Safety Report 7539729-5 (Version None)
Quarter: 2011Q2

REPORT INFORMATION
  Report Type: 
  Country: None (occurrence: None)
  Receive Date: 20110609
  Receipt Date: 20110609
  Transmission Date: 20111010
  Serious: Yes (Hospitalization)
  Sender: FDA-Public Use
  Company Number: None

PATIENT
  Sex: Female
  Weight: 117.02 kg

DRUGS (2)
  1. CARBOPLATIN [Suspect]
     Dosage: 900MG
  2. PACLITAXEL [Suspect]
     Dosage: 270MG

REACTIONS (9)
  - VOMITING [None]
  - STAPHYLOCOCCAL INFECTION [None]
  - DEEP VEIN THROMBOSIS [None]
  - STAPHYLOCOCCAL BACTERAEMIA [None]
  - NAUSEA [None]
  - DEVICE RELATED INFECTION [None]
  - TREMOR [None]
  - ENTEROBACTER INFECTION [None]
  - BLOOD GLUCOSE INCREASED [None]
